FAERS Safety Report 9559147 (Version 5)
Quarter: 2014Q3

REPORT INFORMATION
  Report Type: Report from Study
  Country: US (occurrence: US)
  Receive Date: 20130927
  Receipt Date: 20140924
  Transmission Date: 20150326
  Serious: Yes (Death, Hospitalization, Other)
  Sender: FDA-Public Use
  Company Number: US-ALEXION PHARMACEUTICALS INC.-A201302316

PATIENT

DRUGS (5)
  1. SOLIRIS [Suspect]
     Active Substance: ECULIZUMAB
     Dosage: 900 MG, SINGLE
     Route: 042
     Dates: start: 20130905, end: 20130905
  2. SOLIRIS [Suspect]
     Active Substance: ECULIZUMAB
     Dosage: 900 MG, SINGLE
     Route: 042
     Dates: start: 20130906
  3. SOLIRIS [Suspect]
     Active Substance: ECULIZUMAB
     Indication: HAEMOLYTIC URAEMIC SYNDROME
     Dosage: 900 MG, SINGLE
     Route: 042
     Dates: start: 20130823, end: 20130823
  4. SOLIRIS [Suspect]
     Active Substance: ECULIZUMAB
     Dosage: 900 MG, SINGLE
     Route: 042
     Dates: start: 20130830, end: 20130830
  5. DECADRON [Concomitant]
     Active Substance: DEXAMETHASONE
     Indication: JUVENILE IDIOPATHIC ARTHRITIS
     Dosage: UNK
     Route: 065

REACTIONS (10)
  - Cardio-respiratory arrest [Fatal]
  - General physical health deterioration [Unknown]
  - Coma [Recovered/Resolved]
  - Diverticular perforation [Recovered/Resolved]
  - Intestinal infarction [Recovered/Resolved]
  - Intestinal obstruction [Recovered/Resolved]
  - Therapeutic response changed [Unknown]
  - Sepsis [Recovered/Resolved]
  - Infection [Unknown]
  - Convulsion [Recovered/Resolved]

NARRATIVE: CASE EVENT DATE: 20130901
